FAERS Safety Report 5745569-X (Version None)
Quarter: 2008Q2

REPORT INFORMATION
  Report Type: 
  Country: None (occurrence: None)
  Receive Date: 20080521
  Receipt Date: 20080509
  Transmission Date: 20081010
  Serious: Yes (Other)
  Sender: FDA-Public Use
  Company Number: PL-PFIZER INC-2008040758

PATIENT
  Sex: Male
  Weight: 93 kg

DRUGS (2)
  1. ZELDOX (CAPSULES) [Suspect]
  2. CLORANXEN [Concomitant]
     Route: 048

REACTIONS (1)
  - ATRIOVENTRICULAR BLOCK FIRST DEGREE [None]
